FAERS Safety Report 15351960 (Version 2)
Quarter: 2019Q2

REPORT INFORMATION
  Report Type: Spontaneous
  Country: US (occurrence: US)
  Receive Date: 20180905
  Receipt Date: 20190402
  Transmission Date: 20190711
  Serious: Yes (Hospitalization, Other)
  Sender: FDA-Public Use
  Company Number: US-PFIZER INC-2016581285

PATIENT
  Age: 53 Year
  Sex: Male

DRUGS (25)
  1. ATORVASTATIN [Concomitant]
     Active Substance: ATORVASTATIN
     Dosage: 40 MG, DAILY(TAKE 1 TABLET BY MOUTH AT BEDTIME)
     Route: 048
     Dates: start: 20150607, end: 20170619
  2. HYDROCODONE-ACETAMINOPHEN [Concomitant]
     Active Substance: ACETAMINOPHEN\HYDROCODONE
     Indication: PAIN
     Dosage: 1 DF, AS NEEDED (HYDROCODONE 10 MG-ACETAMINOPHEN 325 MG)(TAKE 1 TABLET BY MOUTH THREE TIMES A DAY
     Route: 048
  3. METFORMIN [Concomitant]
     Active Substance: METFORMIN HYDROCHLORIDE
     Dosage: 1000 MG, 2X/DAY
     Route: 048
     Dates: start: 20150603
  4. CYCLOBENZAPRINE. [Concomitant]
     Active Substance: CYCLOBENZAPRINE
     Indication: MUSCLE SPASMS
     Dosage: 10 MG, AS NEEDED(EVERY EIGHT HOURS AS NEEDED)
     Route: 048
     Dates: start: 20150423
  5. VITAMIN B12 + FOLIC ACID [Concomitant]
     Dosage: 1 DF, 1X/DAY (1 TABLET OF 1,000-400MCG)
     Route: 048
  6. ISOSORBIDE MONONITRATE. [Concomitant]
     Active Substance: ISOSORBIDE MONONITRATE
     Dosage: 30 MG, 1X/DAY (TAKE 1 TABLET BY MOUTH EVERY MORNING)
     Route: 048
     Dates: start: 20150603
  7. LEVEMIR [Concomitant]
     Active Substance: INSULIN DETEMIR
     Dosage: 25 UNITS (IU), 2X/DAY(25 UNITS IN THE AM AND 15 IN THE PM)
     Dates: start: 20160304, end: 20170304
  8. LOSARTAN. [Concomitant]
     Active Substance: LOSARTAN
     Dosage: 25 MG, 1X/DAY (TAKE 1 TABLET BY MOUTH EVERY MORNING)
     Route: 048
     Dates: start: 20160304
  9. ONDANSETRON HCL [Concomitant]
     Active Substance: ONDANSETRON HYDROCHLORIDE
     Indication: NAUSEA
     Dosage: 4 MG, AS NEEDED EVERY SIX HOURS AS NEEDED
     Route: 048
     Dates: start: 20150611
  10. ONDANSETRON HCL [Concomitant]
     Active Substance: ONDANSETRON HYDROCHLORIDE
     Indication: VOMITING
  11. VIAGRA [Concomitant]
     Active Substance: SILDENAFIL CITRATE
     Dosage: 100 MG, AS NEEDED(TAKE 1 TABLET BY MOUTH AS DIRECTED)
     Route: 048
  12. CARVEDILOL. [Concomitant]
     Active Substance: CARVEDILOL
     Dosage: 6.25 MG, 2X/DAY
     Route: 048
     Dates: start: 20150421, end: 20170619
  13. CYMBALTA [Concomitant]
     Active Substance: DULOXETINE HYDROCHLORIDE
     Dosage: 60 MG, 1X/DAY
     Route: 048
  14. FLONASE [Concomitant]
     Active Substance: FLUTICASONE PROPIONATE
     Dosage: UNK, AS NEEDED(2 SPRAY INTO BOTH NOSTRILS EVERY MORNING)
     Dates: start: 20160304
  15. WELLBUTRIN SR [Concomitant]
     Active Substance: BUPROPION HYDROCHLORIDE
     Dosage: 150 MG, 2X/DAY
     Route: 048
     Dates: start: 20150723
  16. HYDROCHLOROTHIAZIDE. [Concomitant]
     Active Substance: HYDROCHLOROTHIAZIDE
     Dosage: 12.5 MG, AS NEEDED (TAKE 1/2 TABLET BY MOUTH ONCE A DAY AS NEEDED)
     Route: 048
  17. PANTOPRAZOLE [Concomitant]
     Active Substance: PANTOPRAZOLE
     Dosage: 40 MG, 1X/DAY(EVERY MORNING)
     Route: 048
     Dates: start: 20150415, end: 20170619
  18. VITAMIN B12 [Concomitant]
     Active Substance: CYANOCOBALAMIN
     Dosage: 1000 UG, 1X/DAY
     Route: 048
  19. ALPRAZOLAM. [Concomitant]
     Active Substance: ALPRAZOLAM
     Dosage: 2 MG, AS NEEDED(1 TABLET OF 2MG BY MOUTH TWICE A DAY)
     Route: 048
     Dates: start: 20160616, end: 20161213
  20. XANAX [Concomitant]
     Active Substance: ALPRAZOLAM
     Indication: ANXIETY
     Dosage: 2 MG, AS NEEDED(TAKE 1 TABLET EVERY 12 HOURS)
  21. ASPIRIN [ACETYLSALICYLIC ACID] [Concomitant]
     Active Substance: ASPIRIN
     Dosage: 81 MG, 1X/DAY
     Route: 048
  22. EFFIENT [Concomitant]
     Active Substance: PRASUGREL HYDROCHLORIDE
     Dosage: 10 MG, 1X/DAY
     Route: 048
     Dates: start: 20140803
  23. MORPHINE [Concomitant]
     Active Substance: MORPHINE
     Dosage: 30 MG, 2X/DAY
     Route: 048
  24. LYRICA [Suspect]
     Active Substance: PREGABALIN
     Indication: NEUROPATHY PERIPHERAL
     Dosage: 150 MG, 3X/DAY
     Route: 048
     Dates: start: 20150623
  25. VITAMIN D3 [Concomitant]
     Active Substance: CHOLECALCIFEROL
     Indication: SUPPLEMENTATION THERAPY
     Dosage: 2000 IU, 1X/DAY(TAKE 1 CAPSULE BY MOUTH EVERY MORNING)
     Route: 048

REACTIONS (2)
  - Cerebrovascular accident [Unknown]
  - Weight decreased [Unknown]

NARRATIVE: CASE EVENT DATE: 2017
